FAERS Safety Report 4648218-7 (Version None)
Quarter: 2005Q2

REPORT INFORMATION
  Report Type: 
  Country: None (occurrence: None)
  Receive Date: 20050331
  Receipt Date: 20050110
  Transmission Date: 20051028
  Serious: No
  Sender: FDA-Public Use
  Company Number: 05P-163-0285839-00

PATIENT
  Age: 55 Year
  Sex: Male
  Weight: 132 kg

DRUGS (6)
  1. HUMIRA [Suspect]
     Indication: RHEUMATOID ARTHRITIS
     Dosage: 40 MG, 1 IN 2 WK, SUBCUTANEOUS
     Route: 058
     Dates: start: 20041101
  2. GLIPIZIDE [Concomitant]
  3. ENALAPRIL MALEATE [Concomitant]
  4. RABEPRAZOLE SODIUM [Concomitant]
  5. METHOTREXATE [Concomitant]
  6. VICODIN [Concomitant]

REACTIONS (1)
  - MUSCULOSKELETAL DISCOMFORT [None]
